FAERS Safety Report 9680981 (Version 1)
Quarter: 2013Q4

REPORT INFORMATION
  Report Type: Spontaneous
  Country: US (occurrence: US)
  Receive Date: 20131111
  Receipt Date: 20131111
  Transmission Date: 20140711
  Serious: Yes (Hospitalization)
  Sender: FDA-Public Use
  Company Number: US-DRREDDYS-USA/USA/13/0035467

PATIENT
  Age: 20 Year
  Sex: Female
  Weight: 54.48 kg

DRUGS (3)
  1. ZENATANE [Suspect]
     Indication: ACNE
     Route: 048
     Dates: start: 20130828
  2. ZENATANE [Suspect]
     Route: 048
  3. PAXIL [Concomitant]
     Indication: PRODUCT USED FOR UNKNOWN INDICATION
     Route: 065

REACTIONS (2)
  - Renal disorder [Recovering/Resolving]
  - Pain [Recovering/Resolving]
